FAERS Safety Report 16668690 (Version 1)
Quarter: 2019Q3

REPORT INFORMATION
  Report Type: Report from Study
  Country: GB (occurrence: GB)
  Receive Date: 20190805
  Receipt Date: 20190805
  Transmission Date: 20191004
  Serious: Yes (Death, Other)
  Sender: FDA-Public Use
  Company Number: GB-MYLANLABS-2019M1065088

PATIENT

DRUGS (6)
  1. ETOPOSIDE. [Suspect]
     Active Substance: ETOPOSIDE
     Indication: DIFFUSE LARGE B-CELL LYMPHOMA
     Dosage: DEVEC WAS SCHEDULED FOR AN INDUCTION AND A DE-ESCALATED MAINTENANCE PHASE, BOTH CONSISTING OF SIX...
     Route: 048
  2. VINORELBINE [Suspect]
     Active Substance: VINORELBINE TARTRATE
     Indication: DIFFUSE LARGE B-CELL LYMPHOMA
     Dosage: DEVEC WAS SCHEDULED FOR AN INDUCTION AND A DE-ESCALATED MAINTENANCE PHASE, BOTH CONSISTING OF SIX...
     Route: 048
  3. CYCLOPHOSPHAMIDE. [Suspect]
     Active Substance: CYCLOPHOSPHAMIDE
     Indication: DIFFUSE LARGE B-CELL LYMPHOMA
     Dosage: DEVEC WAS SCHEDULED FOR AN INDUCTION AND A DE-ESCALATED MAINTENANCE PHASE, BOTH CONSISTING OF SIX...
     Route: 048
  4. ALLOPURINOL. [Concomitant]
     Active Substance: ALLOPURINOL
     Indication: PROPHYLAXIS
     Route: 065
  5. COTRIMOXAZOLE [Concomitant]
     Active Substance: SULFAMETHOXAZOLE\TRIMETHOPRIM
     Indication: PROPHYLAXIS
     Route: 065
  6. DELTACORTENE [Suspect]
     Active Substance: PREDNISONE
     Indication: DIFFUSE LARGE B-CELL LYMPHOMA
     Dosage: DEVEC WAS SCHEDULED FOR AN INDUCTION AND A DE-ESCALATED MAINTENANCE PHASE, BOTH CONSISTING OF SIX...
     Route: 048

REACTIONS (2)
  - Multiple organ dysfunction syndrome [Fatal]
  - Pneumonia bacterial [Fatal]
